FAERS Safety Report 18987437 (Version 1)
Quarter: 2021Q1

REPORT INFORMATION
  Report Type: Spontaneous
  Country: AU (occurrence: AU)
  Receive Date: 20210309
  Receipt Date: 20210309
  Transmission Date: 20210420
  Serious: Yes (Other)
  Sender: FDA-Public Use
  Company Number: AU-BAYER-2021-098383

PATIENT
  Age: 20 Year
  Sex: Female

DRUGS (1)
  1. MIRENA [Suspect]
     Active Substance: LEVONORGESTREL
     Dosage: 20 ?G PER DAY CONTNIUOUSLY
     Route: 015
     Dates: start: 201906

REACTIONS (4)
  - Intentional self-injury [None]
  - Intentional self-injury [None]
  - Genital haemorrhage [None]
  - Intentional self-injury [None]

NARRATIVE: CASE EVENT DATE: 2019
